FAERS Safety Report 24721615 (Version 1)
Quarter: 2024Q4

REPORT INFORMATION
  Report Type: Spontaneous
  Country: US (occurrence: None)
  Receive Date: 20241210
  Receipt Date: 20241210
  Transmission Date: 20250115
  Serious: Yes (Life-Threatening, Other)
  Sender: Public
  Company Number: None

PATIENT
  Age: 41 Year
  Sex: Male
  Weight: 71 kg

DRUGS (7)
  1. LISINOPRIL [Suspect]
     Active Substance: LISINOPRIL
     Indication: Hypertension
     Dosage: 20 MG/KG DAILY ORAL
     Route: 048
     Dates: start: 20241024, end: 20241108
  2. DICLOFENAC [Concomitant]
     Active Substance: DICLOFENAC
     Dates: start: 20211112
  3. GABAPENTIN [Concomitant]
     Active Substance: GABAPENTIN
     Dates: start: 20230802
  4. pseudoephedrine-guaifenesin 120 mg-1200 mg tablets [Concomitant]
     Dates: start: 20241107
  5. benzocaine-menthol 15-2.6 mg lozenge [Concomitant]
     Dates: start: 20241107
  6. benzonatate 100 mg capsules [Concomitant]
     Dates: start: 20241107
  7. dextromethorphan-benzocaine 5 mg - 7.5 mg lozenge [Concomitant]
     Dates: start: 20241107

REACTIONS (2)
  - Angioedema [None]
  - Therapy cessation [None]

NARRATIVE: CASE EVENT DATE: 20241108
